FAERS Safety Report 4506727-5 (Version None)
Quarter: 2004Q4

REPORT INFORMATION
  Report Type: 
  Country: None (occurrence: None)
  Receive Date: 20041117
  Receipt Date: 20041105
  Transmission Date: 20050328
  Serious: Yes (Other)
  Sender: FDA-Public Use
  Company Number: 2004S1000228

PATIENT
  Age: 87 Year
  Sex: Female

DRUGS (3)
  1. CUBICIN [Suspect]
     Indication: STAPHYLOCOCCAL INFECTION
     Dosage: 6 MG/KG; Q48H; IV
     Route: 042
     Dates: start: 20040101
  2. VANCOMYCIN [Concomitant]
  3. GENTAMICIN [Concomitant]

REACTIONS (9)
  - BACK PAIN [None]
  - BACTERAEMIA [None]
  - DISEASE RECURRENCE [None]
  - EXTRADURAL ABSCESS [None]
  - INTERVERTEBRAL DISCITIS [None]
  - OSTEOMYELITIS [None]
  - PURULENCE [None]
  - PYREXIA [None]
  - STAPHYLOCOCCAL INFECTION [None]
